FAERS Safety Report 9548566 (Version 1)
Quarter: 2013Q2

REPORT INFORMATION
  Report Type: Spontaneous
  Country: US (occurrence: None)
  Receive Date: 20130627
  Receipt Date: 20130627
  Transmission Date: 20140414
  Serious: No
  Sender: FDA-Public Use
  Company Number: 1000043322

PATIENT
  Age: 83 Year
  Sex: Female

DRUGS (3)
  1. LINZESS (LINACLOTIDE) [Suspect]
     Indication: FLATULENCE
     Dates: start: 201302
  2. MORPHINE (MORPHINE) [Concomitant]
  3. PERCOCET (ACETAMINOPHEN , OXYCODONE) [Concomitant]

REACTIONS (2)
  - Constipation [None]
  - Off label use [None]
